FAERS Safety Report 7774717-5 (Version None)
Quarter: 2011Q3

REPORT INFORMATION
  Report Type: 
  Country: None (occurrence: None)
  Receive Date: 20110923
  Receipt Date: 20110122
  Transmission Date: 20111222
  Serious: Yes (Other)
  Sender: FDA-Public Use
  Company Number: CZ-ROCHE-804358

PATIENT

DRUGS (1)
  1. ACTEMRA [Suspect]
     Dosage: DOSE, FORM AND FREQUENCY: UNSPECIFIED
     Route: 065
     Dates: start: 20110601

REACTIONS (1)
  - SPONDYLITIS [None]
